FAERS Safety Report 17187955 (Version 2)
Quarter: 2025Q3

REPORT INFORMATION
  Report Type: Spontaneous
  Country: EU (occurrence: EU)
  Receive Date: 20191221
  Receipt Date: 20250901
  Transmission Date: 20251020
  Serious: Yes (Other)
  Sender: AUROBINDO
  Company Number: EU-PFIZER INC-2019519653

PATIENT
  Age: 56 Year
  Sex: Female

DRUGS (8)
  1. MEROPENEM [Suspect]
     Active Substance: MEROPENEM
     Indication: Sinusitis
     Route: 065
  2. MEROPENEM [Suspect]
     Active Substance: MEROPENEM
     Indication: Osteonecrosis
     Dosage: 2 GRAM, 3 TIMES A DAY
     Route: 065
  3. MEROPENEM [Suspect]
     Active Substance: MEROPENEM
     Indication: Pseudomonas infection
     Route: 065
  4. COLISTIN [Suspect]
     Active Substance: COLISTIN
     Indication: Pseudomonas infection
     Route: 065
  5. COLISTIN [Suspect]
     Active Substance: COLISTIN
     Indication: Sinusitis
     Dosage: 2 MU, 3 TIMES A DAY
     Route: 065
  6. COLISTIN [Suspect]
     Active Substance: COLISTIN
     Indication: Osteonecrosis
     Route: 065
  7. AVIBACTAM [Suspect]
     Active Substance: AVIBACTAM
     Indication: Meningitis
     Route: 042
  8. CEFTAZIDIME [Suspect]
     Active Substance: CEFTAZIDIME
     Indication: Meningitis

REACTIONS (1)
  - Drug ineffective [Unknown]
